FAERS Safety Report 9011993 (Version 1)
Quarter: 2012Q4

REPORT INFORMATION
  Report Type: Spontaneous
  Country: FR (occurrence: None)
  Receive Date: 20121228
  Receipt Date: 20121228
  Transmission Date: 20130627
  Serious: Yes (Hospitalization)
  Sender: FDA-Public Use
  Company Number: DKLU1087393

PATIENT
  Age: 59 Year
  Sex: Female

DRUGS (9)
  1. ONFI [Suspect]
     Indication: PRODUCT USED FOR UNKNOWN INDICATION
  2. DEPAKINE CHRONO [Suspect]
     Indication: PRODUCT USED FOR UNKNOWN INDICATION
     Route: 048
     Dates: start: 20121002
  3. LOVENOX (ENOXAPARIN SODIUM) [Suspect]
     Indication: PRODUCT USED FOR UNKNOWN INDICATION
     Dates: start: 20121005
  4. ASPEGIC [Suspect]
     Indication: PRODUCT USED FOR UNKNOWN INDICATION
  5. ZOVIRAX [Suspect]
     Indication: PRODUCT USED FOR UNKNOWN INDICATION
     Route: 042
     Dates: start: 20120929, end: 20121005
  6. PRODILANTIN [Concomitant]
  7. CLAFORAN (CEFOTAXIME SODIUM [Concomitant]
  8. CLAFORAN (CEFOTAXIME SODIUM) [Concomitant]
  9. FLAGYL (METRONIDAZOLE) [Concomitant]

REACTIONS (5)
  - Status epilepticus [None]
  - Hyperthermia [None]
  - Cerebral atrophy [None]
  - Leukoencephalopathy [None]
  - Renal failure acute [None]
